FAERS Safety Report 16095695 (Version 1)
Quarter: 2019Q2

REPORT INFORMATION
  Report Type: Spontaneous
  Country: US (occurrence: US)
  Receive Date: 20190320
  Receipt Date: 20190320
  Transmission Date: 20190711
  Serious: Yes (Other)
  Sender: FDA-Public Use
  Company Number: None

PATIENT
  Age: 38 Year
  Sex: Female
  Weight: 84.15 kg

DRUGS (8)
  1. FLOROCET [Concomitant]
  2. AIMOVIG [Suspect]
     Active Substance: ERENUMAB-AOOE
     Indication: MIGRAINE
     Dosage: ?          QUANTITY:1 INJECTION(S);OTHER FREQUENCY:MONTHLY;?
     Route: 058
     Dates: start: 20190305
  3. GABAPENTIN. [Concomitant]
     Active Substance: GABAPENTIN
  4. RIZATRIPTAN. [Concomitant]
     Active Substance: RIZATRIPTAN
  5. MAGNESIUM [Concomitant]
     Active Substance: MAGNESIUM
  6. DULUXOTINE [Concomitant]
     Active Substance: DULOXETINE
  7. FLEXERIL [Concomitant]
     Active Substance: CYCLOBENZAPRINE HYDROCHLORIDE
  8. RIBOFLAVIN [Concomitant]
     Active Substance: RIBOFLAVIN

REACTIONS (4)
  - Alopecia [None]
  - Fatigue [None]
  - Loss of personal independence in daily activities [None]
  - Poor quality sleep [None]

NARRATIVE: CASE EVENT DATE: 20190308
